FAERS Safety Report 4955078-3 (Version None)
Quarter: 2006Q1

REPORT INFORMATION
  Report Type: 
  Country: None (occurrence: None)
  Receive Date: 20060322
  Receipt Date: 20060302
  Transmission Date: 20060701
  Serious: Yes (Other)
  Sender: FDA-Public Use
  Company Number: US200603000804

PATIENT
  Age: 44 Year
  Sex: Female
  Weight: 117.9 kg

DRUGS (5)
  1. ZYPREXA [Suspect]
     Indication: PARANOIA
     Dosage: SEE IMAGE
     Route: 065
     Dates: start: 19981010
  2. ZYPREXA [Suspect]
     Indication: SCHIZOPHRENIA
     Dosage: SEE IMAGE
     Route: 065
     Dates: start: 19981010
  3. NAVANE [Concomitant]
  4. ZOLOFT [Concomitant]
  5. SEROQUEL [Concomitant]

REACTIONS (11)
  - ALANINE AMINOTRANSFERASE INCREASED [None]
  - APNOEA [None]
  - ASPARTATE AMINOTRANSFERASE INCREASED [None]
  - DEPRESSION [None]
  - DIABETES MELLITUS [None]
  - DIABETES MELLITUS NON-INSULIN-DEPENDENT [None]
  - FATIGUE [None]
  - PRESCRIBED OVERDOSE [None]
  - UTERINE LEIOMYOMA [None]
  - VAGINAL HAEMORRHAGE [None]
  - WEIGHT INCREASED [None]
